FAERS Safety Report 22960094 (Version 2)
Quarter: 2024Q3

REPORT INFORMATION
  Report Type: Spontaneous
  Country: PT (occurrence: PT)
  Receive Date: 20230920
  Receipt Date: 20240912
  Transmission Date: 20241016
  Serious: Yes (Hospitalization, Other)
  Sender: MERCK
  Company Number: PT-009507513-2309PRT005775

PATIENT
  Age: 67 Year
  Sex: Male

DRUGS (6)
  1. PEMBROLIZUMAB [Suspect]
     Active Substance: PEMBROLIZUMAB
     Indication: Head and neck cancer
     Dosage: CYCLE 1
     Dates: start: 20230102, end: 20230102
  2. PEMBROLIZUMAB [Suspect]
     Active Substance: PEMBROLIZUMAB
     Dosage: CYCLE 2
     Dates: start: 20230123, end: 20230123
  3. PEMBROLIZUMAB [Suspect]
     Active Substance: PEMBROLIZUMAB
     Dosage: CYCLE 3
     Dates: start: 2023, end: 2023
  4. PEMBROLIZUMAB [Suspect]
     Active Substance: PEMBROLIZUMAB
     Dosage: CYCLE 4
     Dates: start: 2023, end: 2023
  5. FLUOROURACIL SODIUM [Suspect]
     Active Substance: FLUOROURACIL SODIUM
     Indication: Head and neck cancer
     Dosage: UNK
     Dates: start: 20230123
  6. CISPLATIN [Suspect]
     Active Substance: CISPLATIN
     Indication: Head and neck cancer
     Dosage: UNK
     Dates: start: 20230123

REACTIONS (18)
  - Urosepsis [Unknown]
  - Pneumonia aspiration [Unknown]
  - Cystitis escherichia [Unknown]
  - Hypophysitis [Unknown]
  - Thyroiditis [Unknown]
  - Diabetic ketoacidosis [Unknown]
  - Acute kidney injury [Unknown]
  - Parosmia [Unknown]
  - Taste disorder [Unknown]
  - Blood potassium abnormal [Unknown]
  - Mucosal inflammation [Unknown]
  - Mucosal inflammation [Unknown]
  - Weight decreased [Unknown]
  - Weight decreased [Unknown]
  - Nausea [Unknown]
  - Asthenia [Unknown]
  - Decreased appetite [Unknown]
  - Asthenia [Unknown]

NARRATIVE: CASE EVENT DATE: 20230101
